FAERS Safety Report 11734421 (Version 4)
Quarter: 2016Q3

REPORT INFORMATION
  Report Type: Spontaneous
  Country: US (occurrence: US)
  Receive Date: 20151113
  Receipt Date: 20160919
  Transmission Date: 20161109
  Serious: Yes (Congenital Anomaly, Other)
  Sender: FDA-Public Use
  Company Number: PHEH2015US023511

PATIENT
  Sex: Male

DRUGS (4)
  1. ONDANSETRON DR REDDY [Suspect]
     Active Substance: ONDANSETRON
     Indication: FOETAL EXPOSURE DURING PREGNANCY
     Dosage: MOTHER DOSE: 8 MG BID AND 8 MG 1 TO 2 TIMES DAILY
     Route: 064
  2. ZOFRAN [Suspect]
     Active Substance: ONDANSETRON HYDROCHLORIDE
     Indication: FOETAL EXPOSURE DURING PREGNANCY
     Route: 064
  3. ONDANSETRON AUROBINDO [Suspect]
     Active Substance: ONDANSETRON HYDROCHLORIDE
     Indication: FOETAL EXPOSURE DURING PREGNANCY
     Dosage: MOTHER DOSE: 04 MG BID
     Route: 064
  4. ONDANSETRON HYDROCHLORIDE. [Suspect]
     Active Substance: ONDANSETRON HYDROCHLORIDE
     Indication: FOETAL EXPOSURE DURING PREGNANCY
     Route: 064

REACTIONS (15)
  - Feeding disorder [Unknown]
  - Cleft palate [Unknown]
  - Injury [Unknown]
  - Pain [Unknown]
  - Emotional distress [Unknown]
  - Ear disorder [Unknown]
  - Anxiety [Unknown]
  - Rhinorrhoea [Unknown]
  - Respiratory tract congestion [Unknown]
  - Congenital anomaly [Unknown]
  - Anhedonia [Unknown]
  - Nasal congestion [Unknown]
  - Foetal exposure during pregnancy [Unknown]
  - Jaundice [Unknown]
  - Cough [Unknown]
